FAERS Safety Report 8573109-9 (Version None)
Quarter: 2012Q3

REPORT INFORMATION
  Report Type: 
  Country: None (occurrence: None)
  Receive Date: 20120806
  Receipt Date: 20120727
  Transmission Date: 20120928
  Serious: Yes (Other)
  Sender: FDA-Public Use
  Company Number: US-ACTELION-A-US2011-51630

PATIENT
  Age: 78 Year
  Sex: Male

DRUGS (1)
  1. TRACLEER [Suspect]
     Indication: PULMONARY ARTERIAL HYPERTENSION
     Dosage: UNK
     Route: 048
     Dates: start: 20020920

REACTIONS (6)
  - DYSPNOEA [None]
  - LIMB DISCOMFORT [None]
  - POOR PERIPHERAL CIRCULATION [None]
  - LIPOMA [None]
  - ABDOMINAL PAIN [None]
  - CYANOSIS [None]
